FAERS Safety Report 15483207 (Version 1)
Quarter: 2018Q4

REPORT INFORMATION
  Report Type: Spontaneous
  Country: FR (occurrence: FR)
  Receive Date: 20181010
  Receipt Date: 20181010
  Transmission Date: 20190205
  Serious: Yes (Congenital Anomaly, Other)
  Sender: FDA-Public Use
  Company Number: FR-GLAXOSMITHKLINE-FR2018179597

PATIENT
  Sex: Male
  Weight: 3 kg

DRUGS (3)
  1. ZYPREXA [Suspect]
     Active Substance: OLANZAPINE
     Indication: BIPOLAR I DISORDER
     Dosage: 20 MG, UNK
     Route: 064
     Dates: end: 20180207
  2. LAMICTAL [Suspect]
     Active Substance: LAMOTRIGINE
     Indication: BIPOLAR I DISORDER
     Dosage: 200 MG, QD
     Route: 064
     Dates: end: 20180207
  3. TERALITHE [Suspect]
     Active Substance: LITHIUM CARBONATE
     Indication: BIPOLAR I DISORDER
     Dosage: 1200 MG, QD
     Route: 064
     Dates: end: 20180207

REACTIONS (8)
  - Mitral valve disease [Not Recovered/Not Resolved]
  - Foetal exposure during pregnancy [Unknown]
  - Neonatal anoxia [Recovered/Resolved]
  - Cardiac failure [Not Recovered/Not Resolved]
  - Hypoglycaemia [Recovered/Resolved]
  - Thrombocytopenia [Not Recovered/Not Resolved]
  - Prothrombin time shortened [Not Recovered/Not Resolved]
  - Poor feeding infant [Not Recovered/Not Resolved]

NARRATIVE: CASE EVENT DATE: 20180207
